FAERS Safety Report 25774678 (Version 1)
Quarter: 2025Q3

REPORT INFORMATION
  Report Type: Report from Study
  Country: CA (occurrence: CA)
  Receive Date: 20250908
  Receipt Date: 20250908
  Transmission Date: 20251021
  Serious: Yes (Hospitalization)
  Sender: PFIZER
  Company Number: CA-PFIZER INC-202500176734

PATIENT
  Age: 63 Year
  Sex: Male

DRUGS (3)
  1. ADALIMUMAB [Suspect]
     Active Substance: ADALIMUMAB
     Indication: Rheumatoid arthritis
  2. HYDROXYCHLOROQUINE [Concomitant]
     Active Substance: HYDROXYCHLOROQUINE
     Dosage: 200 MG, 1 EVERY 1 DAYS
  3. PREDNISONE [Concomitant]
     Active Substance: PREDNISONE
     Dosage: 10 MG, 1 EVERY 1 DAYS

REACTIONS (2)
  - Abscess intestinal [Unknown]
  - Diverticulitis [Unknown]
